FAERS Safety Report 19376811 (Version 1)
Quarter: 2021Q2

REPORT INFORMATION
  Report Type: Report from Study
  Country: CA (occurrence: CA)
  Receive Date: 20210604
  Receipt Date: 20210604
  Transmission Date: 20210717
  Serious: Yes (Other)
  Sender: FDA-Public Use
  Company Number: CA-PFIZER INC-2021630537

PATIENT
  Age: 43 Year
  Sex: Female

DRUGS (27)
  1. HYDROMORPHONE HYDROCHLORIDE. [Suspect]
     Active Substance: HYDROMORPHONE HYDROCHLORIDE
     Dosage: 1 DF, 2X/DAY
     Route: 065
  2. CALCIUM/MAGNESIUM/PHOSPHORUS/VITAMIN D NOS [Suspect]
     Active Substance: MINERALS\VITAMINS
     Dosage: 1 DF, 1X/DAY
     Route: 065
  3. NAPROXEN. [Suspect]
     Active Substance: NAPROXEN
     Dosage: 1 DF, 2X/DAY
  4. ATOMOXETINE. [Suspect]
     Active Substance: ATOMOXETINE HYDROCHLORIDE
     Indication: MIGRAINE
     Dosage: UNK
     Route: 065
  5. ATOMOXETINE. [Suspect]
     Active Substance: ATOMOXETINE HYDROCHLORIDE
     Dosage: 1 DF, 1X/DAY
     Route: 065
  6. LAMICTAL [Suspect]
     Active Substance: LAMOTRIGINE
     Dosage: 50 MG, 2X/DAY
     Route: 048
  7. TOPICORT [Suspect]
     Active Substance: DESOXIMETASONE
     Dosage: UNK, 2X/DAY
     Route: 065
  8. CYCLOBENZAPRINE HYDROCHLORIDE. [Suspect]
     Active Substance: CYCLOBENZAPRINE HYDROCHLORIDE
     Dosage: 1 DF, 1X/DAY
     Route: 065
  9. AVAMYS [Suspect]
     Active Substance: FLUTICASONE FUROATE
     Dosage: UNK, 1X/DAY
     Route: 065
  10. BETAMETHASONE VALERATE. [Suspect]
     Active Substance: BETAMETHASONE VALERATE
     Dosage: UNK UNK, 1X/DAY
     Route: 065
  11. DOMPERIDONE/PANTOPRAZOLE SODIUM [Suspect]
     Active Substance: DOMPERIDONE\PANTOPRAZOLE SODIUM
     Dosage: 1 DF, 3X/DAY
     Route: 065
  12. FINACEA [Suspect]
     Active Substance: AZELAIC ACID
     Dosage: UNK, 1X/DAY
     Route: 065
  13. NAPROXEN. [Suspect]
     Active Substance: NAPROXEN
     Dosage: 1 DF, 2X/DAY
  14. TRETINOIN. [Suspect]
     Active Substance: TRETINOIN
     Dosage: UNK
     Route: 065
  15. LAMICTAL [Suspect]
     Active Substance: LAMOTRIGINE
     Dosage: 25 MG, 2X/DAY
     Route: 048
  16. TRAZODONE [Suspect]
     Active Substance: TRAZODONE HYDROCHLORIDE
     Dosage: 1 DF
     Route: 065
  17. BOTULINUM TOXIN TYPE A [Suspect]
     Active Substance: BOTULINUM TOXIN TYPE A
     Dosage: UNK
     Route: 065
  18. CETIRIZINE/PSEUDOEPHEDRINE [Suspect]
     Active Substance: CETIRIZINE HYDROCHLORIDE\PSEUDOEPHEDRINE HYDROCHLORIDE
     Dosage: 1 DF
     Route: 065
  19. FETZIMA [Suspect]
     Active Substance: LEVOMILNACIPRAN HYDROCHLORIDE
     Dosage: 1 DF, 1X/DAY
     Route: 065
  20. MYRBETRIQ [Suspect]
     Active Substance: MIRABEGRON
     Dosage: 1 DF, 1X/DAY
     Route: 065
  21. PANTOPRAZOLE SODIUM. [Suspect]
     Active Substance: PANTOPRAZOLE SODIUM
     Dosage: 1 DF, 2X/DAY
     Route: 065
  22. RANITIDINE. [Suspect]
     Active Substance: RANITIDINE
     Dosage: UNK
     Route: 065
  23. VITAMIN D3 [Suspect]
     Active Substance: CHOLECALCIFEROL
     Dosage: UNK
     Route: 065
  24. AIMOVIG [Suspect]
     Active Substance: ERENUMAB-AOOE
     Indication: MIGRAINE
     Dosage: UNK
     Route: 065
  25. ATOMOXETINE. [Suspect]
     Active Substance: ATOMOXETINE HYDROCHLORIDE
     Dosage: 1 DF, 1X/DAY
     Route: 065
  26. BUTRANS [Suspect]
     Active Substance: BUPRENORPHINE
     Dosage: UNK
     Route: 065
  27. TOPAMAX [Suspect]
     Active Substance: TOPIRAMATE
     Dosage: 25 MG, 1X/DAY
     Route: 065

REACTIONS (14)
  - Epilepsy [Unknown]
  - Gastrooesophageal reflux disease [Unknown]
  - Paraesthesia [Unknown]
  - Taste disorder [Unknown]
  - Abdominal pain upper [Unknown]
  - Product use in unapproved indication [Unknown]
  - Pain [Unknown]
  - Drug ineffective [Unknown]
  - Memory impairment [Unknown]
  - Blepharospasm [Unknown]
  - Drug intolerance [Unknown]
  - Hypoaesthesia [Unknown]
  - Migraine [Unknown]
  - Vomiting [Unknown]
